FAERS Safety Report 4353387-2 (Version None)
Quarter: 2004Q2

REPORT INFORMATION
  Report Type: 
  Country: None (occurrence: None)
  Receive Date: 20040504
  Receipt Date: 20040504
  Transmission Date: 20050107
  Serious: Yes (Hospitalization)
  Sender: FDA-Public Use
  Company Number: None

PATIENT
  Sex: Male
  Weight: 81.6475 kg

DRUGS (52)
  1. VELCADE [Suspect]
     Indication: DIFFUSE LARGE B-CELL LYMPHOMA
     Dosage: 10. MG IV
     Route: 042
     Dates: start: 20040312
  2. VELCADE [Suspect]
     Indication: NON-HODGKIN'S LYMPHOMA
     Dosage: 10. MG IV
     Route: 042
     Dates: start: 20040312
  3. VELCADE [Suspect]
     Indication: DIFFUSE LARGE B-CELL LYMPHOMA
     Dosage: 10. MG IV
     Route: 042
     Dates: start: 20040315
  4. VELCADE [Suspect]
     Indication: NON-HODGKIN'S LYMPHOMA
     Dosage: 10. MG IV
     Route: 042
     Dates: start: 20040315
  5. VELCADE [Suspect]
     Indication: DIFFUSE LARGE B-CELL LYMPHOMA
     Dosage: 10. MG IV
     Route: 042
     Dates: start: 20040402
  6. VELCADE [Suspect]
     Indication: NON-HODGKIN'S LYMPHOMA
     Dosage: 10. MG IV
     Route: 042
     Dates: start: 20040402
  7. VELCADE [Suspect]
     Indication: DIFFUSE LARGE B-CELL LYMPHOMA
     Dosage: 10. MG IV
     Route: 042
     Dates: start: 20040405
  8. VELCADE [Suspect]
     Indication: NON-HODGKIN'S LYMPHOMA
     Dosage: 10. MG IV
     Route: 042
     Dates: start: 20040405
  9. VELCADE [Suspect]
     Indication: DIFFUSE LARGE B-CELL LYMPHOMA
     Dosage: 10. MG IV
     Route: 042
     Dates: start: 20040423
  10. VELCADE [Suspect]
     Indication: NON-HODGKIN'S LYMPHOMA
     Dosage: 10. MG IV
     Route: 042
     Dates: start: 20040423
  11. VELCADE [Suspect]
     Indication: DIFFUSE LARGE B-CELL LYMPHOMA
     Dosage: 10. MG IV
     Route: 042
     Dates: start: 20040426
  12. VELCADE [Suspect]
     Indication: NON-HODGKIN'S LYMPHOMA
     Dosage: 10. MG IV
     Route: 042
     Dates: start: 20040426
  13. RITUXIMAB [Suspect]
     Indication: DIFFUSE LARGE B-CELL LYMPHOMA
     Dosage: 743 MG IV
     Route: 042
     Dates: start: 20040312
  14. RITUXIMAB [Suspect]
     Indication: NON-HODGKIN'S LYMPHOMA
     Dosage: 743 MG IV
     Route: 042
     Dates: start: 20040312
  15. RITUXIMAB [Suspect]
     Indication: DIFFUSE LARGE B-CELL LYMPHOMA
     Dosage: 743 MG IV
     Route: 042
     Dates: start: 20040402
  16. RITUXIMAB [Suspect]
     Indication: NON-HODGKIN'S LYMPHOMA
     Dosage: 743 MG IV
     Route: 042
     Dates: start: 20040402
  17. RITUXIMAB [Suspect]
     Indication: DIFFUSE LARGE B-CELL LYMPHOMA
     Dosage: 743 MG IV
     Route: 042
     Dates: start: 20040423
  18. RITUXIMAB [Suspect]
     Indication: NON-HODGKIN'S LYMPHOMA
     Dosage: 743 MG IV
     Route: 042
     Dates: start: 20040423
  19. CYCLOPHOSPHAMIDE [Suspect]
     Indication: DIFFUSE LARGE B-CELL LYMPHOMA
     Dosage: 1485 MG IV
     Route: 042
     Dates: start: 20040312
  20. CYCLOPHOSPHAMIDE [Suspect]
     Indication: NON-HODGKIN'S LYMPHOMA
     Dosage: 1485 MG IV
     Route: 042
     Dates: start: 20040312
  21. CYCLOPHOSPHAMIDE [Suspect]
     Indication: DIFFUSE LARGE B-CELL LYMPHOMA
     Dosage: 1485 MG IV
     Route: 042
     Dates: start: 20040402
  22. CYCLOPHOSPHAMIDE [Suspect]
     Indication: NON-HODGKIN'S LYMPHOMA
     Dosage: 1485 MG IV
     Route: 042
     Dates: start: 20040402
  23. CYCLOPHOSPHAMIDE [Suspect]
     Indication: DIFFUSE LARGE B-CELL LYMPHOMA
     Dosage: 1485 MG IV
     Route: 042
     Dates: start: 20040423
  24. CYCLOPHOSPHAMIDE [Suspect]
     Indication: NON-HODGKIN'S LYMPHOMA
     Dosage: 1485 MG IV
     Route: 042
     Dates: start: 20040423
  25. DOXORUBICIN HCL [Suspect]
     Indication: DIFFUSE LARGE B-CELL LYMPHOMA
     Dosage: 99 MG IV
     Route: 042
     Dates: start: 20040312
  26. DOXORUBICIN HCL [Suspect]
     Indication: NON-HODGKIN'S LYMPHOMA
     Dosage: 99 MG IV
     Route: 042
     Dates: start: 20040312
  27. DOXORUBICIN HCL [Suspect]
     Indication: DIFFUSE LARGE B-CELL LYMPHOMA
     Dosage: 99 MG IV
     Route: 042
     Dates: start: 20040402
  28. DOXORUBICIN HCL [Suspect]
     Indication: NON-HODGKIN'S LYMPHOMA
     Dosage: 99 MG IV
     Route: 042
     Dates: start: 20040402
  29. DOXORUBICIN HCL [Suspect]
     Indication: DIFFUSE LARGE B-CELL LYMPHOMA
     Dosage: 99 MG IV
     Route: 042
     Dates: start: 20040423
  30. DOXORUBICIN HCL [Suspect]
     Indication: NON-HODGKIN'S LYMPHOMA
     Dosage: 99 MG IV
     Route: 042
     Dates: start: 20040423
  31. VINCRISTINE [Suspect]
     Indication: DIFFUSE LARGE B-CELL LYMPHOMA
     Dosage: 2 MG IV
     Route: 042
     Dates: start: 20040312
  32. VINCRISTINE [Suspect]
     Indication: NON-HODGKIN'S LYMPHOMA
     Dosage: 2 MG IV
     Route: 042
     Dates: start: 20040312
  33. VINCRISTINE [Suspect]
     Indication: DIFFUSE LARGE B-CELL LYMPHOMA
     Dosage: 2 MG IV
     Route: 042
     Dates: start: 20040402
  34. VINCRISTINE [Suspect]
     Indication: NON-HODGKIN'S LYMPHOMA
     Dosage: 2 MG IV
     Route: 042
     Dates: start: 20040402
  35. VINCRISTINE [Suspect]
     Indication: DIFFUSE LARGE B-CELL LYMPHOMA
     Dosage: 2 MG IV
     Route: 042
     Dates: start: 20040423
  36. VINCRISTINE [Suspect]
     Indication: NON-HODGKIN'S LYMPHOMA
     Dosage: 2 MG IV
     Route: 042
     Dates: start: 20040423
  37. PREDNISONE [Suspect]
     Indication: DIFFUSE LARGE B-CELL LYMPHOMA
     Dosage: 100 MG IV
     Route: 042
     Dates: start: 20040312, end: 20040316
  38. PREDNISONE [Suspect]
     Indication: NON-HODGKIN'S LYMPHOMA
     Dosage: 100 MG IV
     Route: 042
     Dates: start: 20040312, end: 20040316
  39. PREDNISONE [Suspect]
     Indication: DIFFUSE LARGE B-CELL LYMPHOMA
     Dosage: 100 MG IV
     Route: 042
     Dates: start: 20040402, end: 20040406
  40. PREDNISONE [Suspect]
     Indication: NON-HODGKIN'S LYMPHOMA
     Dosage: 100 MG IV
     Route: 042
     Dates: start: 20040402, end: 20040406
  41. PREDNISONE [Suspect]
     Indication: DIFFUSE LARGE B-CELL LYMPHOMA
     Dosage: 100 MG IV
     Route: 042
     Dates: start: 20040423, end: 20040427
  42. PREDNISONE [Suspect]
     Indication: NON-HODGKIN'S LYMPHOMA
     Dosage: 100 MG IV
     Route: 042
     Dates: start: 20040423, end: 20040427
  43. LASIX [Concomitant]
  44. SYNTHROID [Concomitant]
  45. PROTONIX [Concomitant]
  46. ATENOLOL [Concomitant]
  47. PRILOSEC [Concomitant]
  48. KYLRIL [Concomitant]
  49. NEULASTA [Concomitant]
  50. ARANESP [Concomitant]
  51. NEORAL [Concomitant]
  52. DECADRON [Concomitant]

REACTIONS (4)
  - ASTHENIA [None]
  - CARDIAC FAILURE CONGESTIVE [None]
  - NAUSEA [None]
  - TACHYCARDIA [None]
